FAERS Safety Report 9486493 (Version 3)
Quarter: 2013Q4

REPORT INFORMATION
  Report Type: Spontaneous
  Country: IT (occurrence: IT)
  Receive Date: 20130829
  Receipt Date: 20131022
  Transmission Date: 20140711
  Serious: Yes (Disabling)
  Sender: FDA-Public Use
  Company Number: IT-SANOFI-AVENTIS-2013SA085508

PATIENT
  Age: 8 Year
  Sex: Female
  Weight: 24 kg

DRUGS (4)
  1. RIFADIN [Suspect]
     Indication: TUBERCULOSIS
     Route: 048
     Dates: start: 20130802, end: 20130811
  2. NICOZID [Suspect]
     Indication: TUBERCULOSIS
     Dosage: STRENGTH: 200 MG
     Route: 048
     Dates: start: 20130802, end: 20130811
  3. PIRALDINA [Suspect]
     Indication: TUBERCULOSIS
     Dosage: STRENGTH: 500 MG
     Route: 048
     Dates: start: 20130802, end: 20130811
  4. PARACETAMOL [Concomitant]
     Indication: PYREXIA
     Route: 048

REACTIONS (8)
  - Pancreatitis [Not Recovered/Not Resolved]
  - Abdominal pain [Recovering/Resolving]
  - Nausea [Recovering/Resolving]
  - Vomiting [Recovering/Resolving]
  - Transaminases increased [Recovering/Resolving]
  - Lipase increased [Recovering/Resolving]
  - Amylase increased [Recovering/Resolving]
  - Liver disorder [Recovering/Resolving]
